FAERS Safety Report 5589136-X (Version None)
Quarter: 2007Q4

REPORT INFORMATION
  Report Type: 
  Country: None (occurrence: None)
  Receive Date: 20071212
  Receipt Date: 20071009
  Transmission Date: 20080405
  Serious: Yes (Other)
  Sender: FDA-Public Use
  Company Number: USA-2007-0029612

PATIENT
  Sex: Male

DRUGS (1)
  1. OXYCONTIN [Suspect]
     Indication: PAIN
     Dosage: MG,ORAL
     Route: 048

REACTIONS (3)
  - ABNORMAL BEHAVIOUR [None]
  - DRUG ABUSER [None]
  - PAIN [None]
